FAERS Safety Report 26061989 (Version 2)
Quarter: 2025Q4

REPORT INFORMATION
  Report Type: Spontaneous
  Country: US (occurrence: US)
  Receive Date: 20251119
  Receipt Date: 20251201
  Transmission Date: 20260119
  Serious: No
  Sender: LEO PHARM
  Company Number: US-LEO Pharma-384179

PATIENT
  Age: 24 Year
  Sex: Female

DRUGS (6)
  1. ADBRY [Suspect]
     Active Substance: TRALOKINUMAB-LDRM
     Indication: Eczema
     Dosage: INJECT 2 (300 MG) PENS UNDER THE SKIN ON DAY 1 (10/31/2025)
     Dates: start: 20251031
  2. ADBRY [Suspect]
     Active Substance: TRALOKINUMAB-LDRM
     Indication: Eczema
     Dosage: INJECT 2 (300 MG) PENS UNDER THE SKIN ON DAY 1 (10/31/2025)
     Dates: start: 20251031
  3. ADBRY [Suspect]
     Active Substance: TRALOKINUMAB-LDRM
     Indication: Eczema
     Dosage: INJECT 2 (300 MG) PENS UNDER THE SKIN ON DAY 1 (10/31/2025)
     Dates: start: 20251031
  4. ADBRY [Suspect]
     Active Substance: TRALOKINUMAB-LDRM
     Indication: Eczema
     Dosage: THEN 1 (300 MG) PEN EVERY 2 WEEKS
  5. ADBRY [Suspect]
     Active Substance: TRALOKINUMAB-LDRM
     Indication: Eczema
     Dosage: THEN 1 (300 MG) PEN EVERY 2 WEEKS
  6. ADBRY [Suspect]
     Active Substance: TRALOKINUMAB-LDRM
     Indication: Eczema
     Dosage: THEN 1 (300 MG) PEN EVERY 2 WEEKS

REACTIONS (5)
  - Sleep disorder [Unknown]
  - Pruritus [Unknown]
  - Asthenia [Recovered/Resolved]
  - Nasopharyngitis [Not Recovered/Not Resolved]
  - Eczema [Unknown]

NARRATIVE: CASE EVENT DATE: 20251031
